FAERS Safety Report 19671222 (Version 1)
Quarter: 2021Q3

REPORT INFORMATION
  Report Type: Spontaneous
  Country: GB (occurrence: GB)
  Receive Date: 20210806
  Receipt Date: 20210806
  Transmission Date: 20211014
  Serious: Yes (Death, Hospitalization)
  Sender: FDA-Public Use
  Company Number: GB-TEVA-2021-GB-1938579

PATIENT
  Age: 44 Year
  Sex: Male
  Weight: 86 kg

DRUGS (5)
  1. ZAPONEX [Suspect]
     Active Substance: CLOZAPINE
     Indication: SCHIZOPHRENIA
     Route: 048
     Dates: start: 20200922, end: 20201113
  2. DIAZEPAM. [Suspect]
     Active Substance: DIAZEPAM
     Route: 065
  3. COCAINE [Suspect]
     Active Substance: COCAINE
     Route: 065
  4. METHADONE [Suspect]
     Active Substance: METHADONE HYDROCHLORIDE
     Route: 065
  5. MORPHINE [Suspect]
     Active Substance: MORPHINE
     Route: 065

REACTIONS (7)
  - Arteriosclerosis coronary artery [Not Recovered/Not Resolved]
  - Hepatic steatosis [Recovering/Resolving]
  - Toxicity to various agents [Fatal]
  - Cardiopulmonary failure [Not Recovered/Not Resolved]
  - Acute myocardial infarction [Unknown]
  - Splenomegaly [Not Recovered/Not Resolved]
  - Rhabdomyolysis [Not Recovered/Not Resolved]

NARRATIVE: CASE EVENT DATE: 20201113
